FAERS Safety Report 25270072 (Version 1)
Quarter: 2025Q2

REPORT INFORMATION
  Report Type: Report from Study
  Country: US (occurrence: US)
  Receive Date: 20250505
  Receipt Date: 20250505
  Transmission Date: 20250717
  Serious: Yes (Death)
  Sender: ABBVIE
  Company Number: US-ABBVIE-6266111

PATIENT
  Age: 75 Year
  Sex: Male

DRUGS (2)
  1. VENCLEXTA [Suspect]
     Active Substance: VENETOCLAX
     Indication: Acute myeloid leukaemia
     Dosage: IN MORNING FOR 21 DAYS?ADMINISTER WITH A MEAL?AND WATER AT THE SAME TIME EACH DAY. DRINK PLENTY O...
     Route: 048
  2. VENCLEXTA [Suspect]
     Active Substance: VENETOCLAX
     Indication: Acute myeloid leukaemia
     Dosage: IN MORNING FOR 1 - 7 DAYS OF 28 DAYS CYCLE?ADMINISTER WITH A MEAL?AND WATER AT THE SAME TIME EACH...
     Route: 048

REACTIONS (1)
  - Death [Fatal]
